FAERS Safety Report 5403205-6 (Version None)
Quarter: 2007Q3

REPORT INFORMATION
  Report Type: 
  Country: None (occurrence: None)
  Receive Date: 20070801
  Receipt Date: 20070720
  Transmission Date: 20080115
  Serious: No
  Sender: FDA-Public Use
  Company Number: JP-PFIZER INC-2007044540

PATIENT
  Sex: Female

DRUGS (1)
  1. AZULFIDINE EN-TABS [Suspect]
     Indication: RHEUMATOID ARTHRITIS
     Route: 048
     Dates: start: 20060712, end: 20070511

REACTIONS (1)
  - NO ADVERSE REACTION [None]
